FAERS Safety Report 10175195 (Version 1)
Quarter: 2014Q2

REPORT INFORMATION
  Report Type: Spontaneous
  Country: US (occurrence: US)
  Receive Date: 20140515
  Receipt Date: 20140515
  Transmission Date: 20141212
  Serious: No
  Sender: FDA-Public Use
  Company Number: US-VIVUS-2014V1000060

PATIENT
  Age: 57 Year
  Sex: Male

DRUGS (3)
  1. QSYMIA 7.5MG/46MG [Suspect]
     Indication: PRODUCT USED FOR UNKNOWN INDICATION
     Route: 048
  2. QSYMIA 3.75MG/23MG [Suspect]
     Indication: PRODUCT USED FOR UNKNOWN INDICATION
     Route: 048
  3. QSYMIA 3.75MG/23MG [Suspect]
     Route: 048

REACTIONS (2)
  - Parathyroid tumour [Not Recovered/Not Resolved]
  - Heart rate increased [Not Recovered/Not Resolved]
